FAERS Safety Report 18077386 (Version 1)
Quarter: 2020Q3

REPORT INFORMATION
  Report Type: Spontaneous
  Country: NL (occurrence: NL)
  Receive Date: 20200728
  Receipt Date: 20200728
  Transmission Date: 20201103
  Serious: Yes (Hospitalization)
  Sender: FDA-Public Use
  Company Number: NL-TEVA-2020-NL-1805588

PATIENT
  Sex: Female
  Weight: 62 kg

DRUGS (3)
  1. DOXYCYCLINE. [Suspect]
     Active Substance: DOXYCYCLINE
     Indication: ARTHROPOD BITE
     Dosage: 200 MILLIGRAM DAILY; THERAPY END DATE : ASKED BUT UNKNOWN
     Route: 065
     Dates: start: 20200625
  2. DENOSUMAB [Concomitant]
     Active Substance: DENOSUMAB
     Dosage: 1X/3MND , UNIT DOSE: 1 DOSAGE FORMS. THERAPY START DATE: ASKED BUT UNKNOWN, THERAPY END DATE : ASKED
  3. ALFACALCIDOL 0,5MCG [Concomitant]
     Dosage: THERAPY START DATE: ASKED BUT UNKNOWN, THERAPY END DATE : ASKED BUT UNKNOWN

REACTIONS (2)
  - Pyrexia [Recovering/Resolving]
  - Rash [Recovering/Resolving]
